FAERS Safety Report 15564831 (Version 3)
Quarter: 2018Q4

REPORT INFORMATION
  Report Type: Spontaneous
  Country: US (occurrence: US)
  Receive Date: 20181030
  Receipt Date: 20181106
  Transmission Date: 20190205
  Serious: No
  Sender: FDA-Public Use
  Company Number: US-PFIZER INC-2018439586

PATIENT
  Sex: Female

DRUGS (3)
  1. XANAX [Suspect]
     Active Substance: ALPRAZOLAM
     Indication: SLEEP DISORDER
     Dosage: HALF OF 0.5 MG XANAX TABLET TO FALL ASLEEP; OTHER HALF IN THE MIDDLE OF THE NIGHT WHEN SHE WAKES UP
  2. AMBIEN [Suspect]
     Active Substance: ZOLPIDEM TARTRATE
     Dosage: UNK
  3. XANAX [Suspect]
     Active Substance: ALPRAZOLAM
     Indication: MIDDLE INSOMNIA

REACTIONS (2)
  - Drug ineffective [Unknown]
  - Poor quality sleep [Unknown]
